FAERS Safety Report 25661960 (Version 1)
Quarter: 2025Q3

REPORT INFORMATION
  Report Type: Spontaneous
  Country: US (occurrence: US)
  Receive Date: 20250809
  Receipt Date: 20250809
  Transmission Date: 20251020
  Serious: Yes (Other)
  Sender: BRISTOL-MYERS SQUIBB COMPANY
  Company Number: US-BRISTOL-MYERS SQUIBB COMPANY-2025-110709

PATIENT
  Age: 71 Year
  Sex: Female
  Weight: 112.94 kg

DRUGS (1)
  1. REVLIMID [Suspect]
     Active Substance: LENALIDOMIDE
     Indication: Malignant melanoma
     Dosage: DAILY FOR 5 DAYS, THEN 2 DAYS OFF - REPEAT FOR 28 DAY CYCLE
     Route: 048

REACTIONS (2)
  - Neuropathy peripheral [Unknown]
  - Off label use [Unknown]
